FAERS Safety Report 25048962 (Version 2)
Quarter: 2025Q1

REPORT INFORMATION
  Report Type: Spontaneous
  Country: US (occurrence: US)
  Receive Date: 20250307
  Receipt Date: 20250310
  Transmission Date: 20250409
  Serious: Yes (Death, Life-Threatening, Other)
  Sender: ALEXION PHARMACEUTICALS
  Company Number: US-ASTRAZENECA-202503USA002264US

PATIENT

DRUGS (6)
  1. SEROQUEL [Suspect]
     Active Substance: QUETIAPINE FUMARATE
     Indication: Sleep disorder
     Route: 065
  2. SEROQUEL [Suspect]
     Active Substance: QUETIAPINE FUMARATE
     Route: 065
  3. SEROQUEL [Suspect]
     Active Substance: QUETIAPINE FUMARATE
     Route: 065
  4. XANAX [Suspect]
     Active Substance: ALPRAZOLAM
     Indication: Product used for unknown indication
     Route: 065
  5. XANAX [Suspect]
     Active Substance: ALPRAZOLAM
     Route: 065
  6. XANAX [Suspect]
     Active Substance: ALPRAZOLAM
     Route: 065

REACTIONS (18)
  - Suicidal ideation [Unknown]
  - Abortion spontaneous [Fatal]
  - Drug dependence [Unknown]
  - Female reproductive tract disorder [Unknown]
  - Menopause [Unknown]
  - Serum serotonin decreased [Unknown]
  - Menstruation irregular [Unknown]
  - Insomnia [Unknown]
  - Memory impairment [Unknown]
  - Compulsive sexual behaviour [Unknown]
  - Anxiety [Unknown]
  - Cerebral disorder [Unknown]
  - Anger [Unknown]
  - Menstrual clots [Unknown]
  - Product use issue [Unknown]
  - Product dose omission issue [Unknown]
  - Off label use [Unknown]
  - Product use in unapproved indication [Unknown]
